FAERS Safety Report 20658485 (Version 1)
Quarter: 2022Q1

REPORT INFORMATION
  Report Type: Spontaneous
  Country: SI (occurrence: SI)
  Receive Date: 20220331
  Receipt Date: 20220331
  Transmission Date: 20220424
  Serious: Yes (Other)
  Sender: FDA-Public Use
  Company Number: SI-NOVARTISPH-NVSC2022SI071566

PATIENT
  Age: 54 Year
  Sex: Female

DRUGS (1)
  1. PANTOPRAZOLE [Suspect]
     Active Substance: PANTOPRAZOLE
     Indication: Product used for unknown indication
     Dosage: 40 MG (IN THE MORNING)
     Route: 065

REACTIONS (6)
  - Gastric ulcer [Unknown]
  - Adenocarcinoma gastric [Unknown]
  - Dyspepsia [Unknown]
  - Early satiety [Unknown]
  - Eructation [Unknown]
  - Drug ineffective [Unknown]
